FAERS Safety Report 8608526-1 (Version None)
Quarter: 2012Q3

REPORT INFORMATION
  Report Type: 
  Country: None (occurrence: None)
  Receive Date: 20120809
  Receipt Date: 20120809
  Transmission Date: 20120928
  Serious: Yes (Death, Other)
  Sender: FDA-Public Use
  Company Number: None

PATIENT
  Age: 37 Year
  Sex: Female
  Weight: 58.0604 kg

DRUGS (2)
  1. CVS DAIRY RELIEF EXTRA STRENGTH GUARDIAN DRUG CAPLETS EXTRA S [Suspect]
     Indication: LACTOSE INTOLERANCE
     Dosage: 1 PILL AS NEEDED WITH DAI
     Dates: start: 20120711, end: 20120711
  2. CVS DAIRY RELIEF EXTRA STRENGTH GUARDIAN DRUG CAPLETS EXTRA S [Suspect]
     Indication: LACTOSE INTOLERANCE
     Dosage: 1 PILL AS NEEDED WITH DAI
     Dates: start: 20120715, end: 20120715

REACTIONS (8)
  - PYREXIA [None]
  - DIARRHOEA [None]
  - DYSGEUSIA [None]
  - HYPOPHAGIA [None]
  - VOMITING [None]
  - HAEMATEMESIS [None]
  - ABDOMINAL PAIN [None]
  - PAIN [None]
